FAERS Safety Report 25738295 (Version 2)
Quarter: 2025Q3

REPORT INFORMATION
  Report Type: Spontaneous
  Country: US (occurrence: US)
  Receive Date: 20250829
  Receipt Date: 20250905
  Transmission Date: 20251020
  Serious: Yes (Life-Threatening, Hospitalization, Disabling)
  Sender: INDOCO REMEDIES LIMITED
  Company Number: US-MLMSERVICE-20250818-PI618302-00043-1

PATIENT
  Age: 76 Year
  Sex: Male

DRUGS (2)
  1. ALLOPURINOL [Suspect]
     Active Substance: ALLOPURINOL
     Indication: Product used for unknown indication
     Dosage: 100 MG ONCE DAILY
     Route: 065
     Dates: start: 20231017, end: 202312
  2. INSULIN NOS [Concomitant]
     Active Substance: INSULIN NOS
     Indication: Hyperglycaemia
     Route: 065

REACTIONS (1)
  - Drug reaction with eosinophilia and systemic symptoms [Recovering/Resolving]

NARRATIVE: CASE EVENT DATE: 20231101
